FAERS Safety Report 25510175 (Version 1)
Quarter: 2025Q3

REPORT INFORMATION
  Report Type: Spontaneous
  Country: US (occurrence: US)
  Receive Date: 20250703
  Receipt Date: 20250703
  Transmission Date: 20251021
  Serious: No
  Sender: RADIUS PHARM
  Company Number: US-RADIUS HEALTH INC.-2024US002952

PATIENT
  Age: 54 Year
  Sex: Female

DRUGS (4)
  1. TYMLOS [Suspect]
     Active Substance: ABALOPARATIDE
     Indication: Product used for unknown indication
     Route: 058
     Dates: start: 20231122
  2. BACLOFEN [Concomitant]
     Active Substance: BACLOFEN
     Indication: Product used for unknown indication
  3. DIAZEPAM [Concomitant]
     Active Substance: DIAZEPAM
     Indication: Product used for unknown indication
  4. CALCIUM\VITAMIN D [Concomitant]
     Active Substance: CALCIUM\VITAMIN D
     Indication: Product used for unknown indication

REACTIONS (8)
  - Product use complaint [Unknown]
  - Incorrect dose administered by device [Unknown]
  - Injection site reaction [Not Recovered/Not Resolved]
  - Inflammation [Not Recovered/Not Resolved]
  - Pelvic pain [Not Recovered/Not Resolved]
  - Abdominal pain [Not Recovered/Not Resolved]
  - Loss of personal independence in daily activities [Not Recovered/Not Resolved]
  - Product dose omission issue [Not Recovered/Not Resolved]

NARRATIVE: CASE EVENT DATE: 20240428
